FAERS Safety Report 19489036 (Version 1)
Quarter: 2021Q3

REPORT INFORMATION
  Report Type: Spontaneous
  Country: US (occurrence: US)
  Receive Date: 20210703
  Receipt Date: 20210703
  Transmission Date: 20211014
  Serious: No
  Sender: FDA-Public Use
  Company Number: US-LUPIN PHARMACEUTICALS INC.-2021-10649

PATIENT
  Age: 41 Year
  Sex: Male

DRUGS (19)
  1. IBUPROFEN. [Suspect]
     Active Substance: IBUPROFEN
     Indication: SCROTAL PAIN
     Dosage: 400 MILLIGRAM
     Route: 065
  2. MOXIFLOXACIN. [Suspect]
     Active Substance: MOXIFLOXACIN
     Indication: SCROTAL PAIN
     Dosage: UNK
     Route: 065
  3. CRISABOROLE [Suspect]
     Active Substance: CRISABOROLE
     Indication: SCROTAL PAIN
     Dosage: UNK
     Route: 065
  4. TACROLIMUS. [Suspect]
     Active Substance: TACROLIMUS
     Indication: SCROTAL ERYTHEMA
  5. INDOMETHACIN. [Concomitant]
     Active Substance: INDOMETHACIN
     Indication: SCROTAL PAIN
     Dosage: 50 MILLIGRAM, QID,THREE TIMES A DAY
     Route: 065
  6. DOXYCYCLINE. [Suspect]
     Active Substance: DOXYCYCLINE
     Indication: SCROTAL PAIN
     Dosage: 100 MILLIGRAM, BID
     Route: 065
  7. DOXYCYCLINE. [Suspect]
     Active Substance: DOXYCYCLINE
     Indication: SCROTAL ERYTHEMA
  8. MOXIFLOXACIN. [Suspect]
     Active Substance: MOXIFLOXACIN
     Indication: SCROTAL ERYTHEMA
  9. IBUPROFEN. [Suspect]
     Active Substance: IBUPROFEN
     Indication: SCROTAL ERYTHEMA
  10. AZITHROMYCIN ANHYDROUS. [Concomitant]
     Active Substance: AZITHROMYCIN ANHYDROUS
     Indication: SCROTAL PAIN
     Dosage: 1 GRAM
     Route: 065
  11. INDOMETHACIN. [Concomitant]
     Active Substance: INDOMETHACIN
     Indication: SCROTAL ERYTHEMA
     Dosage: 50 MILLIGRAM
     Route: 065
  12. BETAMETHASONE. [Suspect]
     Active Substance: BETAMETHASONE
     Indication: SCROTAL PAIN
     Dosage: UNK
     Route: 065
  13. TACROLIMUS. [Suspect]
     Active Substance: TACROLIMUS
     Indication: SCROTAL PAIN
     Dosage: UNK
     Route: 065
  14. INDOMETHACIN. [Concomitant]
     Active Substance: INDOMETHACIN
     Dosage: 50 MILLIGRAM,THREE TIMES A WEEK
     Route: 065
  15. AZITHROMYCIN ANHYDROUS. [Concomitant]
     Active Substance: AZITHROMYCIN ANHYDROUS
     Indication: SCROTAL ERYTHEMA
  16. CAMPHOR;MENTHOL [Concomitant]
     Indication: SCROTAL PAIN
     Dosage: UNK
     Route: 061
  17. CAMPHOR;MENTHOL [Concomitant]
     Indication: SCROTAL ERYTHEMA
  18. BETAMETHASONE. [Suspect]
     Active Substance: BETAMETHASONE
     Indication: SCROTAL ERYTHEMA
  19. CRISABOROLE [Suspect]
     Active Substance: CRISABOROLE
     Indication: SCROTAL ERYTHEMA

REACTIONS (1)
  - Drug ineffective [Unknown]
